FAERS Safety Report 6751338-4 (Version None)
Quarter: 2010Q2

REPORT INFORMATION
  Report Type: 
  Country: None (occurrence: None)
  Receive Date: 20100527
  Receipt Date: 20100517
  Transmission Date: 20101027
  Serious: Yes (Hospitalization)
  Sender: FDA-Public Use
  Company Number: 1-22663646

PATIENT
  Age: 23 Year
  Sex: Female

DRUGS (1)
  1. MINOCYCLINE (MANUFACTURER NOT REPORTED) [Suspect]
     Indication: ACNE
     Dosage: 100 MG/DAY, ORAL
     Route: 048
     Dates: start: 20061101, end: 20070501

REACTIONS (6)
  - ALANINE AMINOTRANSFERASE INCREASED [None]
  - ANTINUCLEAR ANTIBODY POSITIVE [None]
  - ASPARTATE AMINOTRANSFERASE INCREASED [None]
  - DERMATOMYOSITIS [None]
  - DRUG INEFFECTIVE [None]
  - ERYTHEMA NODOSUM [None]
